FAERS Safety Report 6037993-5 (Version None)
Quarter: 2009Q1

REPORT INFORMATION
  Report Type: 
  Country: None (occurrence: None)
  Receive Date: 20090113
  Receipt Date: 20090113
  Transmission Date: 20090719
  Serious: Yes (Other)
  Sender: FDA-Public Use
  Company Number: None

PATIENT
  Age: 41 Year
  Sex: Female
  Weight: 109 kg

DRUGS (1)
  1. LYRICA [Suspect]

REACTIONS (10)
  - ALOPECIA [None]
  - AMENORRHOEA [None]
  - BLISTER [None]
  - FATIGUE [None]
  - HAIR COLOUR CHANGES [None]
  - IMPAIRED HEALING [None]
  - NAIL DISORDER [None]
  - ONYCHOCLASIS [None]
  - PITTING OEDEMA [None]
  - SKIN FISSURES [None]
